FAERS Safety Report 4386071-X (Version None)
Quarter: 2004Q2

REPORT INFORMATION
  Report Type: 
  Country: None (occurrence: None)
  Receive Date: 20040610
  Receipt Date: 20030908
  Transmission Date: 20050107
  Serious: Yes (Hospitalization)
  Sender: FDA-Public Use
  Company Number: 2003UW11445

PATIENT

DRUGS (1)
  1. PRILOSEC [Suspect]
     Dosage: 20 MG QD PO
     Route: 048
     Dates: start: 20010101

REACTIONS (1)
  - RASH [None]
